FAERS Safety Report 24944387 (Version 6)
Quarter: 2025Q3

REPORT INFORMATION
  Report Type: Report from Study
  Country: CA (occurrence: CA)
  Receive Date: 20250208
  Receipt Date: 20250714
  Transmission Date: 20251020
  Serious: Yes (Other)
  Sender: TEVA
  Company Number: CA-TEVA-VS-3294326

PATIENT
  Age: 27 Year
  Sex: Female

DRUGS (5)
  1. AJOVY [Suspect]
     Active Substance: FREMANEZUMAB-VFRM
     Indication: Migraine prophylaxis
     Route: 058
     Dates: start: 20250128, end: 20250128
  2. AJOVY [Suspect]
     Active Substance: FREMANEZUMAB-VFRM
     Dosage: 225 MG/ 1.5 ML?LAST DOSE ADMINISTERED: 2025-05-17
     Route: 058
  3. TOPAMAX [Concomitant]
     Active Substance: TOPIRAMATE
     Indication: Product used for unknown indication
  4. ELAVIL [Concomitant]
     Active Substance: AMITRIPTYLINE HYDROCHLORIDE
     Indication: Product used for unknown indication
  5. INDERAL [Concomitant]
     Active Substance: PROPRANOLOL HYDROCHLORIDE
     Indication: Product used for unknown indication

REACTIONS (11)
  - Loss of consciousness [Recovered/Resolved]
  - Incorrect dose administered [Unknown]
  - Presyncope [Recovered/Resolved]
  - Accidental exposure to product [Unknown]
  - Dyspnoea [Recovered/Resolved]
  - Confusional state [Recovered/Resolved]
  - Oropharyngeal pain [Unknown]
  - Chest pain [Recovered/Resolved]
  - Nasopharyngitis [Unknown]
  - Rhinorrhoea [Unknown]
  - Syncope [Recovered/Resolved]

NARRATIVE: CASE EVENT DATE: 20250128
